FAERS Safety Report 8136051-3 (Version None)
Quarter: 2012Q1

REPORT INFORMATION
  Report Type: 
  Country: None (occurrence: None)
  Receive Date: 20120214
  Receipt Date: 20120207
  Transmission Date: 20120608
  Serious: Yes (Hospitalization, Other)
  Sender: FDA-Public Use
  Company Number: US-US-EMD SERONO, INC.-7064424

PATIENT
  Sex: Female

DRUGS (7)
  1. SIMVASTATIN [Concomitant]
     Indication: BLOOD CHOLESTEROL INCREASED
  2. SIMBATIN [Concomitant]
     Indication: BLOOD CHOLESTEROL INCREASED
  3. REBIF [Suspect]
     Route: 058
     Dates: start: 20110701, end: 20111101
  4. AMPYRA [Concomitant]
  5. GALANTANIME [Concomitant]
     Indication: PRODUCT USED FOR UNKNOWN INDICATION
  6. FLUOXETINE [Concomitant]
     Indication: DEPRESSION
  7. REBIF [Suspect]
     Indication: MULTIPLE SCLEROSIS
     Route: 058
     Dates: start: 20110416, end: 20110610

REACTIONS (17)
  - DEPRESSED MOOD [None]
  - BRAIN OEDEMA [None]
  - SYPHILIS [None]
  - CEREBRAL ATROPHY [None]
  - SKIN DISCOLOURATION [None]
  - DRUG INEFFECTIVE [None]
  - AMNESIA [None]
  - DYSARTHRIA [None]
  - MOBILITY DECREASED [None]
  - PNEUMONIA [None]
  - OPEN WOUND [None]
  - FALL [None]
  - FACIAL ASYMMETRY [None]
  - PERIPHERAL COLDNESS [None]
  - SECONDARY PROGRESSIVE MULTIPLE SCLEROSIS [None]
  - POLLAKIURIA [None]
  - HEAD INJURY [None]
